FAERS Safety Report 5754907-3 (Version None)
Quarter: 2008Q2

REPORT INFORMATION
  Report Type: 
  Country: None (occurrence: None)
  Receive Date: 20080527
  Receipt Date: 20080506
  Transmission Date: 20081010
  Serious: Yes (Death)
  Sender: FDA-Public Use
  Company Number: 2008AL003740

PATIENT
  Age: 73 Year
  Sex: Male

DRUGS (1)
  1. DIGOXIN [Suspect]
     Dosage: MANY YEARS

REACTIONS (1)
  - HEART RATE INCREASED [None]
